FAERS Safety Report 8850490 (Version 3)
Quarter: 2012Q4

REPORT INFORMATION
  Report Type: Report from Study
  Country: US (occurrence: US)
  Receive Date: 20121019
  Receipt Date: 20121130
  Transmission Date: 20130627
  Serious: Yes (Other)
  Sender: FDA-Public Use
  Company Number: US-ABBOTT-12P-163-0995380-00

PATIENT
  Age: 28 Year
  Sex: Female
  Weight: 61.74 kg

DRUGS (12)
  1. HUMIRA [Suspect]
     Indication: CROHN^S DISEASE
     Route: 058
     Dates: start: 20080909, end: 20080909
  2. HUMIRA [Suspect]
     Dosage: Week 2
     Route: 058
  3. HUMIRA [Suspect]
     Route: 058
  4. HUMIRA [Suspect]
     Route: 058
     Dates: start: 20090511, end: 20100524
  5. EUGYNON [Concomitant]
     Indication: CONTRACEPTION
     Route: 048
     Dates: start: 20030305, end: 20100823
  6. SIMETICONE [Concomitant]
     Indication: ABDOMINAL DISTENSION
     Route: 048
  7. ERGOCALCIFEROL [Concomitant]
     Indication: VITAMIN SUPPLEMENTATION
     Route: 048
     Dates: start: 20090213, end: 20100823
  8. FOLIC ACID [Concomitant]
     Indication: VITAMIN SUPPLEMENTATION
     Route: 048
     Dates: start: 20050114, end: 20120823
  9. PENTASA [Concomitant]
     Indication: GASTROINTESTINAL INFLAMMATION
     Dates: start: 2000, end: 20100823
  10. PENTASA [Concomitant]
     Indication: IMPAIRED HEALING
  11. PENTASA [Concomitant]
     Indication: CROHN^S DISEASE
  12. CYANOCOBALAMIN [Concomitant]
     Indication: VITAMIN B12 DEFICIENCY
     Route: 030
     Dates: start: 20101021

REACTIONS (1)
  - Pancreatic neuroendocrine tumour [Not Recovered/Not Resolved]
